FAERS Safety Report 8152648-9 (Version None)
Quarter: 2012Q1

REPORT INFORMATION
  Report Type: 
  Country: None (occurrence: None)
  Receive Date: 20120103
  Receipt Date: 20110926
  Transmission Date: 20120608
  Serious: No
  Sender: FDA-Public Use
  Company Number: AE-2011-001806

PATIENT
  Age: 61 Year
  Sex: Male
  Weight: 104.3273 kg

DRUGS (5)
  1. PEGASYS [Concomitant]
  2. PROZAC [Concomitant]
  3. INCIVEK [Suspect]
     Dosage: 2250 MG (750 MG,1 IN 8 HR),ORAL
     Route: 048
     Dates: start: 20110923
  4. RIBAVIRIN [Concomitant]
  5. KLONOPIN [Concomitant]

REACTIONS (5)
  - FATIGUE [None]
  - RASH PRURITIC [None]
  - HAEMORRHOIDS [None]
  - ANAL PRURITUS [None]
  - ANORECTAL DISCOMFORT [None]
